FAERS Safety Report 20901798 (Version 2)
Quarter: 2022Q3

REPORT INFORMATION
  Report Type: Spontaneous
  Country: US (occurrence: US)
  Receive Date: 20220601
  Receipt Date: 20220711
  Transmission Date: 20221027
  Serious: No
  Sender: FDA-Public Use
  Company Number: US-JNJFOC-20220552680

PATIENT
  Age: 5 Decade
  Sex: Male

DRUGS (1)
  1. MENS ROGAINE EXTRA STRENGTH [Suspect]
     Active Substance: MINOXIDIL
     Indication: Product used for unknown indication
     Dosage: 1 CAPFUL
     Route: 061
     Dates: start: 202201, end: 2022

REACTIONS (4)
  - Application site erythema [Recovering/Resolving]
  - Application site irritation [Recovering/Resolving]
  - Application site exfoliation [Recovering/Resolving]
  - Overdose [Unknown]

NARRATIVE: CASE EVENT DATE: 20220101
